FAERS Safety Report 17229733 (Version 1)
Quarter: 2020Q1

REPORT INFORMATION
  Report Type: Spontaneous
  Country: GB (occurrence: GB)
  Receive Date: 20200103
  Receipt Date: 20200103
  Transmission Date: 20200409
  Serious: Yes (Other)
  Sender: FDA-Public Use
  Company Number: GB-AMGEN-GBRSP2019217332

PATIENT
  Age: 35 Year
  Sex: Female
  Weight: 54.7 kg

DRUGS (1)
  1. ADALIMUMAB [Suspect]
     Active Substance: ADALIMUMAB
     Indication: PSORIATIC ARTHROPATHY
     Dosage: 40 UNK
     Route: 058
     Dates: start: 20170202

REACTIONS (3)
  - Inflammation [Unknown]
  - Skin ulcer [Unknown]
  - Cutaneous leishmaniasis [Unknown]

NARRATIVE: CASE EVENT DATE: 20190802
